FAERS Safety Report 23727496 (Version 1)
Quarter: 2024Q2

REPORT INFORMATION
  Report Type: Spontaneous
  Country: JP (occurrence: JP)
  Receive Date: 20240410
  Receipt Date: 20240410
  Transmission Date: 20240716
  Serious: Yes (Death, Hospitalization, Other)
  Sender: FDA-Public Use
  Company Number: JP-MSD-2402JPN000683J

PATIENT
  Age: 85 Year
  Sex: Female
  Weight: 53 kg

DRUGS (30)
  1. KEYTRUDA [Suspect]
     Active Substance: PEMBROLIZUMAB
     Indication: Oesophageal carcinoma
     Dosage: 200 MILLIGRAM
     Route: 041
     Dates: start: 20221114, end: 20230721
  2. CISPLATIN [Suspect]
     Active Substance: CISPLATIN
     Indication: Oesophageal carcinoma
     Dosage: 70 MG/BODY
     Route: 065
     Dates: start: 20221114, end: 20221114
  3. CISPLATIN [Suspect]
     Active Substance: CISPLATIN
     Dosage: 60 MG/BODY
     Route: 065
     Dates: start: 20221213, end: 20230405
  4. CISPLATIN [Suspect]
     Active Substance: CISPLATIN
     Dosage: 60 MG/BODY
     Route: 065
     Dates: start: 20230621, end: 20230621
  5. FLUOROURACIL [Concomitant]
     Active Substance: FLUOROURACIL
     Indication: Oesophageal carcinoma
     Dosage: 1000 MG/BODY
     Route: 065
     Dates: start: 20221114, end: 20221114
  6. FLUOROURACIL [Concomitant]
     Active Substance: FLUOROURACIL
     Dosage: 900 MG/BODY
     Route: 065
     Dates: start: 20221213, end: 20230405
  7. FLUOROURACIL [Concomitant]
     Active Substance: FLUOROURACIL
     Dosage: 900 MG/BODY
     Route: 065
     Dates: start: 20230621, end: 20230721
  8. FLUOROURACIL [Concomitant]
     Active Substance: FLUOROURACIL
     Dosage: 800 MG/BODY
     Route: 065
     Dates: start: 2023, end: 2023
  9. FLUOROURACIL [Concomitant]
     Active Substance: FLUOROURACIL
     Dosage: 800 MG/BODY
     Route: 065
     Dates: start: 20230926, end: 20231029
  10. AMLODIPINE BESYLATE [Concomitant]
     Active Substance: AMLODIPINE BESYLATE
     Dosage: UNK
     Route: 065
  11. ATORVASTATIN CALCIUM TRIHYDRATE [Concomitant]
     Active Substance: ATORVASTATIN CALCIUM TRIHYDRATE
     Dosage: UNK
     Route: 065
     Dates: end: 20240105
  12. LOSARTAN POTASSIUM [Concomitant]
     Active Substance: LOSARTAN POTASSIUM
     Dosage: UNK
     Route: 065
     Dates: end: 20240105
  13. SITAGLIPTIN [Concomitant]
     Active Substance: SITAGLIPTIN
     Dosage: UNK
     Route: 065
  14. LEVOTHYROXINE SODIUM [Concomitant]
     Active Substance: LEVOTHYROXINE SODIUM
     Dosage: UNK
     Route: 065
  15. PREDNISOLONE [Concomitant]
     Active Substance: PREDNISOLONE
     Dosage: 2.5 MILLIGRAM
     Route: 065
     Dates: end: 20231120
  16. IGURATIMOD [Concomitant]
     Active Substance: IGURATIMOD
     Dosage: UNK
     Route: 065
     Dates: end: 20240105
  17. RABEPRAZOLE SODIUM [Concomitant]
     Active Substance: RABEPRAZOLE SODIUM
     Dosage: UNK
     Route: 065
  18. CLOPIDOGREL BISULFATE [Concomitant]
     Active Substance: CLOPIDOGREL BISULFATE
     Dosage: UNK
     Route: 065
     Dates: end: 20240106
  19. SULFAMETHOXAZOLE\TRIMETHOPRIM [Concomitant]
     Active Substance: SULFAMETHOXAZOLE\TRIMETHOPRIM
     Dosage: UNK
     Route: 065
     Dates: end: 20240105
  20. ZINC [Concomitant]
     Active Substance: PYRITHIONE ZINC\ZINC\ZINC CHLORIDE
     Dosage: UNK
     Route: 065
     Dates: end: 20240105
  21. AMINO ACIDS\CARBOHYDRATES\MINERALS\SOYBEAN OIL\VITAMINS [Concomitant]
     Active Substance: AMINO ACIDS\CARBOHYDRATES\MINERALS\SOYBEAN OIL\VITAMINS
     Dosage: UNK
     Route: 065
     Dates: end: 20240105
  22. SPIRONOLACTONE [Concomitant]
     Active Substance: SPIRONOLACTONE
     Dosage: UNK
     Route: 065
  23. SODIUM FERROUS CITRATE [Concomitant]
     Active Substance: SODIUM FERROUS CITRATE
     Dosage: UNK
     Route: 065
     Dates: end: 20240105
  24. ALFACALCIDOL [Concomitant]
     Active Substance: ALFACALCIDOL
     Dosage: UNK
     Route: 065
     Dates: end: 20240105
  25. LINAGLIPTIN [Concomitant]
     Active Substance: LINAGLIPTIN
     Dosage: UNK
     Route: 065
     Dates: end: 20240105
  26. INSULIN ASPART [Concomitant]
     Active Substance: INSULIN ASPART
     Dosage: UNK
     Route: 065
  27. SODIUM CHLORIDE [Concomitant]
     Active Substance: SODIUM CHLORIDE
     Dosage: UNK
     Route: 065
     Dates: end: 20240105
  28. OPHTHALON [Concomitant]
     Dosage: UNK
     Route: 065
  29. BETAMETHASONE SODIUM PHOSPHATE [Concomitant]
     Active Substance: BETAMETHASONE SODIUM PHOSPHATE
     Dosage: UNK
     Route: 065
  30. DIQUAS LX [Concomitant]
     Dosage: UNK
     Route: 065

REACTIONS (2)
  - Vanishing bile duct syndrome [Fatal]
  - Tubulointerstitial nephritis [Not Recovered/Not Resolved]

NARRATIVE: CASE EVENT DATE: 20231120
